FAERS Safety Report 4890260-5 (Version None)
Quarter: 2006Q1

REPORT INFORMATION
  Report Type: 
  Country: None (occurrence: None)
  Receive Date: 20060124
  Receipt Date: 20050325
  Transmission Date: 20060701
  Serious: Yes (Hospitalization)
  Sender: FDA-Public Use
  Company Number: US-MERCK-0503USA04979

PATIENT
  Age: 56 Year
  Sex: Male
  Weight: 80 kg

DRUGS (44)
  1. VIOXX [Suspect]
     Indication: ARTHRITIS
     Route: 048
     Dates: start: 20000101, end: 20040901
  2. ACYCLOVIR [Concomitant]
     Route: 065
  3. ANCEF [Concomitant]
     Route: 065
  4. ASPIRIN [Concomitant]
     Route: 065
  5. ATENOLOL [Concomitant]
     Route: 065
  6. BACTRIM [Concomitant]
     Route: 065
  7. BENADRYL [Concomitant]
     Route: 065
  8. CLONAZEPAM [Concomitant]
     Route: 065
  9. CLOTRIMAZOLE [Concomitant]
     Route: 065
  10. COMPAZINE [Concomitant]
     Route: 065
  11. CORDARONE [Concomitant]
     Route: 065
  12. COREG [Concomitant]
     Route: 065
  13. CYTOMEL [Concomitant]
     Route: 065
  14. [THERAPY UNSPECIFIED] [Concomitant]
     Route: 065
  15. DIFLUCAN [Concomitant]
     Route: 065
  16. EFFEXOR [Concomitant]
     Route: 065
  17. EPIVIR [Concomitant]
     Route: 065
  18. KETOCONAZOLE [Concomitant]
     Route: 065
  19. KLONOPIN [Concomitant]
     Route: 065
  20. KYTRIL [Concomitant]
     Route: 065
  21. LASIX [Concomitant]
     Route: 065
  22. LIPITOR [Concomitant]
     Route: 065
  23. LOTENSIN [Concomitant]
     Route: 065
  24. MARINOL [Concomitant]
     Route: 065
  25. METOPROLOL [Concomitant]
     Route: 065
  26. MOTRIN [Concomitant]
     Route: 065
  27. NIZORAL [Concomitant]
     Route: 065
  28. REMERON [Concomitant]
     Route: 065
  29. SUSTIVA [Concomitant]
     Route: 065
  30. THIAMINE [Concomitant]
     Route: 065
  31. TORADOL [Concomitant]
     Route: 065
  32. VICODIN [Concomitant]
     Route: 065
  33. WELLBUTRIN [Concomitant]
     Route: 065
  34. ZERIT [Concomitant]
     Route: 065
  35. ZOCOR [Concomitant]
     Route: 065
  36. XANAX [Concomitant]
     Route: 065
  37. BENAZEPRIL HYDROCHLORIDE [Concomitant]
     Route: 065
  38. IBUPROFEN [Concomitant]
     Route: 065
  39. NAPROSYN [Concomitant]
     Route: 065
  40. VIREAD [Concomitant]
     Route: 065
  41. DOXYCYCLINE [Concomitant]
     Route: 065
  42. LEVOFLOXACIN [Concomitant]
     Route: 065
  43. PROPRANOLOL HYDROCHLORIDE [Concomitant]
     Route: 065
  44. TRIZIVIR [Concomitant]
     Route: 065

REACTIONS (10)
  - ACUTE MYOCARDIAL INFARCTION [None]
  - ATELECTASIS [None]
  - CARDIAC FAILURE CONGESTIVE [None]
  - CARDIAC MURMUR [None]
  - CATHETER SITE INFECTION [None]
  - CHEST DISCOMFORT [None]
  - CORONARY ARTERY DISEASE [None]
  - DEPRESSION [None]
  - DYSPNOEA [None]
  - HYPERTENSION [None]
